FAERS Safety Report 13621165 (Version 3)
Quarter: 2017Q3

REPORT INFORMATION
  Report Type: Spontaneous
  Country: JP (occurrence: JP)
  Receive Date: 20170607
  Receipt Date: 20170710
  Transmission Date: 20171127
  Serious: Yes (Death)
  Sender: FDA-Public Use
  Company Number: JP-MEDA-2017060009

PATIENT
  Age: 79 Year
  Sex: Female

DRUGS (7)
  1. HALFDIGOXIN [Suspect]
     Active Substance: DIGOXIN
     Route: 048
  2. TENELIA [Suspect]
     Active Substance: TENELIGLIPTIN
     Indication: TYPE 2 DIABETES MELLITUS
     Route: 048
     Dates: start: 20160427
  3. OMEPRAZON [Suspect]
     Active Substance: OMEPRAZOLE
     Route: 048
  4. ELIQUIS [Suspect]
     Active Substance: APIXABAN
     Route: 048
  5. ARTIST [Suspect]
     Active Substance: CARVEDILOL
  6. LUPRAC [Suspect]
     Active Substance: TORSEMIDE
     Route: 048
  7. CRAVIT [Suspect]
     Active Substance: LEVOFLOXACIN
     Route: 048

REACTIONS (1)
  - Gastric cancer [Fatal]

NARRATIVE: CASE EVENT DATE: 20170511
